FAERS Safety Report 25106080 (Version 1)
Quarter: 2025Q1

REPORT INFORMATION
  Report Type: Spontaneous
  Country: IN (occurrence: IN)
  Receive Date: 20250321
  Receipt Date: 20250321
  Transmission Date: 20250409
  Serious: Yes (Hospitalization)
  Sender: PFIZER
  Company Number: IN-PFIZER INC-PV202500033511

PATIENT
  Age: 35 Year
  Sex: Male

DRUGS (1)
  1. CRIZOTINIB [Suspect]
     Active Substance: CRIZOTINIB
     Dosage: 250 MG, 2X/DAY
     Route: 048
     Dates: start: 202502

REACTIONS (5)
  - Loss of consciousness [Unknown]
  - Feeding disorder [Unknown]
  - Vomiting [Unknown]
  - Arthralgia [Unknown]
  - Headache [Unknown]
